FAERS Safety Report 6389655-2 (Version None)
Quarter: 2009Q4

REPORT INFORMATION
  Report Type: 
  Country: None (occurrence: None)
  Receive Date: 20091006
  Receipt Date: 20090924
  Transmission Date: 20100525
  Serious: Yes (Hospitalization)
  Sender: FDA-Public Use
  Company Number: US-BRISTOL-MYERS SQUIBB COMPANY-14774699

PATIENT
  Age: 57 Year
  Sex: Male

DRUGS (8)
  1. ARIPIPRAZOLE [Suspect]
     Indication: SCHIZOPHRENIA
     Dosage: ON 04SEP09 DOSE INCREASED TO 15 MG/D :PO ALSO RECEIVED 15MG ON 03SEP09
     Route: 048
     Dates: start: 20090831
  2. LOPRESSOR [Concomitant]
     Indication: HYPERTENSION
     Dosage: ALOS RECEIVED 50 MG ORAL
     Dates: start: 20080401
  3. CRESTOR [Concomitant]
     Dates: start: 20080401
  4. IMDUR [Concomitant]
     Dates: start: 20080401
  5. PLAVIX [Concomitant]
     Dates: start: 20080401
  6. ASPIRIN [Concomitant]
     Dates: start: 20080401
  7. TYLENOL (CAPLET) [Concomitant]
     Dosage: TYLENOL USA
     Dates: start: 20090628
  8. COGENTIN [Concomitant]
     Dates: start: 20090319

REACTIONS (1)
  - PARANOIA [None]
